FAERS Safety Report 17287027 (Version 1)
Quarter: 2020Q1

REPORT INFORMATION
  Report Type: Spontaneous
  Country: US (occurrence: US)
  Receive Date: 20200120
  Receipt Date: 20200120
  Transmission Date: 20200409
  Serious: Yes (Life-Threatening, Hospitalization, Other)
  Sender: FDA-Public Use
  Company Number: US-DRREDDYS-USA/USA/20/0118647

PATIENT
  Age: 21 Year
  Sex: Female

DRUGS (1)
  1. ISOTRETINOIN NOT OTHERWISE SPECIFIED [Suspect]
     Active Substance: ISOTRETINOIN
     Indication: PRODUCT USED FOR UNKNOWN INDICATION
     Route: 048

REACTIONS (4)
  - Pulmonary renal syndrome [Recovering/Resolving]
  - Vasculitis [Unknown]
  - Hyperkalaemia [Not Recovered/Not Resolved]
  - Granulomatosis with polyangiitis [Recovering/Resolving]
